FAERS Safety Report 10488369 (Version 2)
Quarter: 2014Q4

REPORT INFORMATION
  Report Type: Report from Study
  Country: US (occurrence: US)
  Receive Date: 20141002
  Receipt Date: 20141012
  Transmission Date: 20150528
  Serious: Yes (Hospitalization, Other)
  Sender: FDA-Public Use
  Company Number: PHEH2014US019356

PATIENT
  Age: 56 Year
  Sex: Male
  Weight: 75.29 kg

DRUGS (3)
  1. TEGRETOL-XR [Suspect]
     Active Substance: CARBAMAZEPINE
     Indication: SEIZURE
     Dosage: 1 DF, IN MORNING
     Route: 048
  2. TEGRETOL [Suspect]
     Active Substance: CARBAMAZEPINE
     Indication: SEIZURE
     Dosage: 2 DF, BID
     Route: 048
  3. TOPAMAX [Concomitant]
     Active Substance: TOPIRAMATE
     Indication: SEIZURE
     Dosage: 3 DF (1 DF IN MORNING, 2 DF IN NIGHT)
     Route: 048

REACTIONS (3)
  - Complex partial seizures [Unknown]
  - Scar [Unknown]
  - Malaise [Unknown]

NARRATIVE: CASE EVENT DATE: 20140924
